FAERS Safety Report 19166086 (Version 1)
Quarter: 2021Q2

REPORT INFORMATION
  Report Type: Spontaneous
  Country: US (occurrence: US)
  Receive Date: 20210422
  Receipt Date: 20210422
  Transmission Date: 20210717
  Serious: No
  Sender: FDA-Public Use
  Company Number: US-009507513-2104USA005326

PATIENT
  Sex: Female

DRUGS (5)
  1. LENVATINIB MESYLATE [Suspect]
     Active Substance: LENVATINIB MESYLATE
     Indication: OVARIAN CANCER
  2. KEYTRUDA [Suspect]
     Active Substance: PEMBROLIZUMAB
     Indication: ENDOMETRIAL CANCER
     Dosage: UNK
  3. AMLODIPINE [Concomitant]
     Active Substance: AMLODIPINE BESYLATE
  4. LENVATINIB MESYLATE [Suspect]
     Active Substance: LENVATINIB MESYLATE
     Indication: ENDOMETRIAL CANCER
     Dosage: 20 MILLIGRAM, QD
     Route: 048
     Dates: start: 20210407
  5. KEYTRUDA [Suspect]
     Active Substance: PEMBROLIZUMAB
     Indication: OVARIAN CANCER

REACTIONS (6)
  - Pruritus [Recovered/Resolved]
  - Fatigue [Not Recovered/Not Resolved]
  - Headache [Recovered/Resolved]
  - Product use in unapproved indication [Unknown]
  - Blood pressure systolic increased [Unknown]
  - Pain in extremity [Not Recovered/Not Resolved]

NARRATIVE: CASE EVENT DATE: 2021
